FAERS Safety Report 4340630-9 (Version None)
Quarter: 2004Q2

REPORT INFORMATION
  Report Type: 
  Country: None (occurrence: None)
  Receive Date: 20040416
  Receipt Date: 20040408
  Transmission Date: 20050107
  Serious: Yes (Other)
  Sender: FDA-Public Use
  Company Number: 400150805

PATIENT
  Age: 57 Year
  Sex: Female

DRUGS (13)
  1. INDIGO CARMINE [Suspect]
     Indication: URETEROSCOPY
     Dosage: 5 ML X 1, IV
     Route: 042
     Dates: start: 20040407
  2. ESTRACE [Concomitant]
  3. PAXIL [Concomitant]
  4. VICODIN [Concomitant]
  5. CEFEPIM [Concomitant]
  6. VERSED [Concomitant]
  7. DECADRON [Concomitant]
  8. ZANTAC [Concomitant]
  9. ANCEF [Concomitant]
  10. DESFLURANE [Concomitant]
  11. PROPOFOL [Concomitant]
  12. LIDOCAINE 1% [Concomitant]
  13. SUCCINYLCHOLINE [Concomitant]

REACTIONS (1)
  - CONVULSION [None]
